FAERS Safety Report 8774209 (Version 1)
Quarter: 2012Q4

REPORT INFORMATION
  Report Type: 
  Country: US (occurrence: US)
  Receive Date: 20120907
  Receipt Date: 20120907
  Transmission Date: 20130627
  Serious: Yes (Other)
  Sender: FDA-Public Use
  Company Number: US-JNJFOC-20120814754

PATIENT
  Sex: Female

DRUGS (4)
  1. LEVAQUIN [Suspect]
     Indication: BRONCHOSPASM
     Route: 048
  2. LEVAQUIN [Suspect]
     Indication: BRONCHITIS
     Route: 048
  3. PREDNISONE [Suspect]
     Indication: BRONCHOSPASM
     Route: 048
  4. PREDNISONE [Suspect]
     Indication: BRONCHITIS
     Route: 048

REACTIONS (6)
  - Tendon rupture [Unknown]
  - Tendon rupture [Unknown]
  - Tenosynovitis [Unknown]
  - Tendon disorder [Unknown]
  - Tendonitis [Unknown]
  - Plantar fasciitis [Unknown]
